FAERS Safety Report 5787378-1 (Version None)
Quarter: 2008Q2

REPORT INFORMATION
  Report Type: 
  Country: None (occurrence: None)
  Receive Date: 20080625
  Receipt Date: 20080620
  Transmission Date: 20081010
  Serious: Yes (Other)
  Sender: FDA-Public Use
  Company Number: CH-WYE-G00994308

PATIENT
  Age: 63 Year
  Sex: Male
  Weight: 70 kg

DRUGS (5)
  1. EFFEXOR [Suspect]
     Indication: DEPRESSION
     Dosage: FROM 75 TO 150 MG DAILY
     Route: 048
     Dates: start: 20060926, end: 20070101
  2. EFFEXOR [Suspect]
     Route: 048
     Dates: start: 20070101, end: 20071109
  3. EFFEXOR [Suspect]
     Route: 048
     Dates: start: 20071110, end: 20071223
  4. ISOTRETINOIN [Concomitant]
     Route: 048
     Dates: end: 20071129
  5. ASPIRIN [Concomitant]

REACTIONS (5)
  - AMNESIA [None]
  - APATHY [None]
  - PARAESTHESIA [None]
  - UNEVALUABLE EVENT [None]
  - WITHDRAWAL SYNDROME [None]
